FAERS Safety Report 23264237 (Version 1)
Quarter: 2023Q4

REPORT INFORMATION
  Report Type: Other
  Country: US (occurrence: None)
  Receive Date: 20231205
  Receipt Date: 20231205
  Transmission Date: 20240110
  Serious: Yes (Hospitalization)
  Sender: FDA-Public Use
  Company Number: US-ROCHE-3467363

PATIENT
  Age: 65 Year
  Sex: Female

DRUGS (1)
  1. OCREVUS [Suspect]
     Active Substance: OCRELIZUMAB
     Indication: Relapsing-remitting multiple sclerosis
     Route: 065

REACTIONS (9)
  - Immunodeficiency [Unknown]
  - Infection [Unknown]
  - Drug ineffective [Unknown]
  - Migraine [Unknown]
  - Anxiety [Unknown]
  - Blood cholesterol increased [Unknown]
  - Hypertension [Unknown]
  - Depression [Unknown]
  - Hypersensitivity [Unknown]

NARRATIVE: CASE EVENT DATE: 20230922
